FAERS Safety Report 12771895 (Version 1)
Quarter: 2016Q3

REPORT INFORMATION
  Report Type: Report from Study
  Country: CA (occurrence: CA)
  Receive Date: 20160922
  Receipt Date: 20160922
  Transmission Date: 20161109
  Serious: Yes (Hospitalization)
  Sender: FDA-Public Use
  Company Number: CA-HLSUS-2016-CA-000462

PATIENT
  Age: 18 Year
  Sex: Male

DRUGS (3)
  1. CLOZARIL [Suspect]
     Active Substance: CLOZAPINE
     Route: 048
     Dates: start: 20110525
  2. LITHIUM CARBONATE. [Concomitant]
     Active Substance: LITHIUM CARBONATE
  3. RISPERDAL [Concomitant]
     Active Substance: RISPERIDONE
     Dosage: 7 MG DAILY

REACTIONS (5)
  - Hospitalisation [Unknown]
  - Off label use [None]
  - Condition aggravated [Unknown]
  - Impaired work ability [None]
  - Schizoaffective disorder [Unknown]

NARRATIVE: CASE EVENT DATE: 20130101
